FAERS Safety Report 8965599 (Version 1)
Quarter: 2012Q4

REPORT INFORMATION
  Report Type: Spontaneous
  Country: DK (occurrence: None)
  Receive Date: 20121206
  Receipt Date: 20121206
  Transmission Date: 20130627
  Serious: Yes (Life-Threatening)
  Sender: FDA-Public Use
  Company Number: 2012034067

PATIENT
  Age: 75 Year
  Sex: Female

DRUGS (2)
  1. PRIVIGEN [Suspect]
     Indication: CHRONIC LYMPHOCYTIC LEUKAEMIA
     Dosage: 100 mg/ml
     Route: 042
     Dates: start: 20121030, end: 20121030
  2. PANTOPRAZOLE [Concomitant]

REACTIONS (3)
  - Atrial fibrillation [None]
  - Hypotension [None]
  - Ejection fraction decreased [None]
